FAERS Safety Report 14349784 (Version 16)
Quarter: 2022Q4

REPORT INFORMATION
  Report Type: Spontaneous
  Country: PL (occurrence: PL)
  Receive Date: 20180104
  Receipt Date: 20221205
  Transmission Date: 20230113
  Serious: Yes (Hospitalization, Other)
  Sender: FDA-Public Use
  Company Number: PL-EMA-DD-20171215-NEGIEVPROD-105414

PATIENT
  Age: 32 Year
  Sex: Male

DRUGS (43)
  1. VINORELBINE [Suspect]
     Active Substance: VINORELBINE TARTRATE
     Indication: Chemotherapy
     Dosage: UNK, 4 IGEV COURSES
     Route: 065
     Dates: start: 201512
  2. VINORELBINE [Suspect]
     Active Substance: VINORELBINE TARTRATE
     Indication: Hodgkin^s disease recurrent
     Dosage: UNK
     Route: 065
  3. VINORELBINE [Suspect]
     Active Substance: VINORELBINE TARTRATE
     Indication: Hodgkin^s disease
  4. CARBOPLATIN [Suspect]
     Active Substance: CARBOPLATIN
     Indication: Hodgkin^s disease recurrent
     Dosage: 3 COURSES OF ICE REGIMEN
     Route: 065
  5. CARBOPLATIN [Suspect]
     Active Substance: CARBOPLATIN
     Indication: Chemotherapy
     Dosage: UNK
     Route: 065
  6. GEMCITABINE [Suspect]
     Active Substance: GEMCITABINE
     Indication: Chemotherapy
     Dosage: UNK, 4 COURSES OF IGEV REGIMEN
     Route: 065
  7. GEMCITABINE [Suspect]
     Active Substance: GEMCITABINE
     Indication: Hodgkin^s disease recurrent
     Dosage: UNK, 4 CYCLES - IGEV SCHEME
     Route: 065
     Dates: start: 201512
  8. GEMCITABINE [Suspect]
     Active Substance: GEMCITABINE
     Indication: Hodgkin^s disease
  9. IFOSFAMIDE [Suspect]
     Active Substance: IFOSFAMIDE
     Indication: Hodgkin^s disease recurrent
     Dosage: UNK,3 COURSES OF ICE REGIMEN, 4 CYCLES -IGEVSCHEME
     Route: 065
     Dates: start: 201512
  10. IFOSFAMIDE [Suspect]
     Active Substance: IFOSFAMIDE
     Indication: Hodgkin^s disease
     Dosage: UNK, 3 CYCLES - ICE SCHEME
     Route: 065
  11. IFOSFAMIDE [Suspect]
     Active Substance: IFOSFAMIDE
     Indication: Chemotherapy
  12. ETOPOSIDE [Suspect]
     Active Substance: ETOPOSIDE
     Indication: Hodgkin^s disease recurrent
     Dosage: UNK3 COURSES OF ICE REGIMEN
     Route: 065
  13. ETOPOSIDE [Suspect]
     Active Substance: ETOPOSIDE
     Indication: Hodgkin^s disease
     Dosage: UNK, 3 CYCLES - ICE SCHEME
     Route: 065
  14. ETOPOSIDE [Suspect]
     Active Substance: ETOPOSIDE
     Indication: Chemotherapy
  15. DOXORUBICIN [Suspect]
     Active Substance: DOXORUBICIN
     Indication: Chemotherapy
     Dosage: UNK, 4 COURSES- ABVD SCHEME
     Route: 065
     Dates: start: 20121001, end: 20130801
  16. DOXORUBICIN [Suspect]
     Active Substance: DOXORUBICIN
     Indication: Hodgkin^s disease
     Dosage: UNK, 4 CYCLES - ABVD SCHEME
     Route: 065
  17. DOXORUBICIN [Suspect]
     Active Substance: DOXORUBICIN
     Indication: Metastases to lymph nodes
  18. BENDAMUSTINE HYDROCHLORIDE [Suspect]
     Active Substance: BENDAMUSTINE HYDROCHLORIDE
     Indication: Chemotherapy
     Dosage: UNK, 4 COURSES OF BB REGIMEN
     Route: 042
     Dates: start: 20160101, end: 20170101
  19. BENDAMUSTINE HYDROCHLORIDE [Suspect]
     Active Substance: BENDAMUSTINE HYDROCHLORIDE
     Indication: Hodgkin^s disease recurrent
     Dosage: UNK
     Route: 042
  20. BENDAMUSTINE HYDROCHLORIDE [Suspect]
     Active Substance: BENDAMUSTINE HYDROCHLORIDE
     Dosage: UNK
     Route: 065
     Dates: start: 201701
  21. IFOSFAMIDE [Suspect]
     Active Substance: IFOSFAMIDE
     Indication: Hodgkin^s disease recurrent
     Dosage: UNK, 4 COURSES OF IGEV REGIMEN
     Route: 065
  22. IFOSFAMIDE [Suspect]
     Active Substance: IFOSFAMIDE
     Dosage: UNK,3 COURSES OF ICE REGIMEN
     Route: 065
  23. DACARBAZINE [Suspect]
     Active Substance: DACARBAZINE
     Indication: Hodgkin^s disease
     Dosage: UNK, 4 COURSES
     Route: 065
     Dates: start: 20121001, end: 20130801
  24. DACARBAZINE [Suspect]
     Active Substance: DACARBAZINE
     Indication: Chemotherapy
     Dosage: UNK, 4 CYCLES - ABVD SCHEME
     Route: 065
  25. DACARBAZINE [Suspect]
     Active Substance: DACARBAZINE
     Indication: Metastases to lymph nodes
  26. BLEOMYCIN [Suspect]
     Active Substance: BLEOMYCIN SULFATE
     Indication: Hodgkin^s disease
     Dosage: UNK 4 COURSES
     Route: 065
     Dates: start: 20121001, end: 20130801
  27. BLEOMYCIN [Suspect]
     Active Substance: BLEOMYCIN SULFATE
     Indication: Chemotherapy
     Dosage: UNK,4 COURSES, 4 CYCLES - ABVD SCHEME
     Route: 065
  28. BLEOMYCIN [Suspect]
     Active Substance: BLEOMYCIN SULFATE
     Indication: Metastases to lymph nodes
  29. VINBLASTINE [Suspect]
     Active Substance: VINBLASTINE
     Indication: Hodgkin^s disease
     Dosage: UNK, 4 COURSES
     Route: 065
     Dates: start: 20121001, end: 20130801
  30. VINBLASTINE [Suspect]
     Active Substance: VINBLASTINE
     Indication: Chemotherapy
     Dosage: UNK, 4 CYCLES - ABVD SCHEME
     Route: 065
  31. VINBLASTINE [Suspect]
     Active Substance: VINBLASTINE
     Indication: Metastases to lymph nodes
  32. BRENTUXIMAB [Suspect]
     Active Substance: BRENTUXIMAB
     Indication: Chemotherapy
     Dosage: UNK, 4 COURSES OF BB REGIMEN
     Route: 065
     Dates: start: 20160101
  33. BRENTUXIMAB [Suspect]
     Active Substance: BRENTUXIMAB
     Indication: Hodgkin^s disease recurrent
     Dosage: UNK
     Route: 065
     Dates: start: 20160101, end: 201701
  34. BRENTUXIMAB [Suspect]
     Active Substance: BRENTUXIMAB
     Indication: Hodgkin^s disease
     Dosage: UNK, 4 CYCLES - BB SCHEME
     Route: 065
     Dates: start: 201701
  35. DEXAMETHASONE [Suspect]
     Active Substance: DEXAMETHASONE
     Indication: Hodgkin^s disease
     Dosage: UNK
     Route: 065
  36. CEFTAZIDIME [Concomitant]
     Active Substance: CEFTAZIDIME
     Indication: Pneumonia
     Dosage: 2 G, BID
     Route: 065
     Dates: start: 20170406
  37. CEFTAZIDIME [Concomitant]
     Active Substance: CEFTAZIDIME
     Dosage: 4 G, UNK
     Route: 065
     Dates: start: 20170401
  38. CEFTAZIDIME [Concomitant]
     Active Substance: CEFTAZIDIME
     Dosage: 2 G, QD
     Route: 065
     Dates: start: 20170406
  39. LACTOBACILLUS ACIDOPHILUS [Concomitant]
     Active Substance: LACTOBACILLUS ACIDOPHILUS
     Indication: Product used for unknown indication
     Dosage: 3 DF, QD,(3 X 1 CAPS)
     Route: 065
  40. LACTOBACILLUS ACIDOPHILUS [Concomitant]
     Active Substance: LACTOBACILLUS ACIDOPHILUS
     Dosage: UNK
     Route: 065
  41. AMIKACIN [Concomitant]
     Active Substance: AMIKACIN
     Indication: Pneumonia
     Dosage: 1 G, QD
     Route: 065
     Dates: start: 20170406
  42. AMIKACIN [Concomitant]
     Active Substance: AMIKACIN
     Dosage: 2 G, QD
     Route: 065
     Dates: start: 20170406
  43. AMIKACIN [Concomitant]
     Active Substance: AMIKACIN
     Dosage: 1 G, UNK
     Route: 065
     Dates: start: 20170401

REACTIONS (12)
  - Demyelinating polyneuropathy [Recovering/Resolving]
  - Guillain-Barre syndrome [Unknown]
  - Hypoaesthesia [Unknown]
  - Urinary retention [Unknown]
  - Hypotonia [Unknown]
  - Quadriplegia [Recovering/Resolving]
  - Hodgkin^s disease recurrent [Unknown]
  - Peripheral nerve injury [Unknown]
  - Areflexia [Unknown]
  - Drug ineffective for unapproved indication [Unknown]
  - Off label use [Unknown]
  - Product use in unapproved indication [Unknown]

NARRATIVE: CASE EVENT DATE: 20150101
